FAERS Safety Report 7462640-5 (Version None)
Quarter: 2011Q2

REPORT INFORMATION
  Report Type: 
  Country: None (occurrence: None)
  Receive Date: 20110506
  Receipt Date: 20110430
  Transmission Date: 20111010
  Serious: Yes (Other)
  Sender: FDA-Public Use
  Company Number: PHHY2011US25127

PATIENT
  Sex: Female

DRUGS (4)
  1. XANAX [Concomitant]
     Dosage: 1 MG, TID
  2. PROVENTIL [Concomitant]
  3. PAXIL [Concomitant]
     Dosage: 30 MG, BID
  4. CARBAMAZEPINE [Suspect]
     Dosage: 200 MG, QID

REACTIONS (3)
  - DRUG INEFFECTIVE [None]
  - SUICIDAL BEHAVIOUR [None]
  - CRYING [None]
